FAERS Safety Report 11590678 (Version 3)
Quarter: 2016Q2

REPORT INFORMATION
  Report Type: Spontaneous
  Country: US (occurrence: US)
  Receive Date: 20151002
  Receipt Date: 20160503
  Transmission Date: 20160815
  Serious: Yes (Hospitalization, Other)
  Sender: FDA-Public Use
  Company Number: US-ELI_LILLY_AND_COMPANY-US201509009814

PATIENT
  Age: 54 Year
  Sex: Male
  Weight: 82.54 kg

DRUGS (7)
  1. CYMBALTA [Concomitant]
     Active Substance: DULOXETINE HYDROCHLORIDE
     Indication: DEPRESSION
     Dosage: 60 MG, QD
     Route: 065
     Dates: start: 20110101
  2. AXIRON [Suspect]
     Active Substance: TESTOSTERONE
     Indication: BLOOD TESTOSTERONE DECREASED
     Dosage: 60 MG, QD
     Route: 065
     Dates: start: 20111029, end: 20131227
  3. ANDROGEL [Suspect]
     Active Substance: TESTOSTERONE
     Indication: BLOOD TESTOSTERONE DECREASED
     Dosage: 2 DF, QD
     Route: 065
     Dates: start: 20120709, end: 20121121
  4. LISINOPRIL. [Concomitant]
     Active Substance: LISINOPRIL
     Indication: HYPERTENSION
     Dosage: 5 MG, QD
     Route: 065
     Dates: start: 20111205, end: 20140505
  5. AXIRON [Suspect]
     Active Substance: TESTOSTERONE
     Indication: BLOOD TESTOSTERONE DECREASED
  6. ATIVAN [Concomitant]
     Active Substance: LORAZEPAM
     Indication: ANXIETY
     Dosage: 2 MG, QD
     Route: 065
     Dates: start: 20110101
  7. LYRICA [Concomitant]
     Active Substance: PREGABALIN
     Dosage: UNK, UNKNOWN
     Route: 065

REACTIONS (3)
  - Acute myocardial infarction [Not Recovered/Not Resolved]
  - Cardiac disorder [Not Recovered/Not Resolved]
  - Coronary artery disease [Not Recovered/Not Resolved]

NARRATIVE: CASE EVENT DATE: 20120306
